FAERS Safety Report 9352506 (Version 1)
Quarter: 2013Q2

REPORT INFORMATION
  Report Type: Spontaneous
  Country: US (occurrence: US)
  Receive Date: 20130617
  Receipt Date: 20130617
  Transmission Date: 20140414
  Serious: No
  Sender: FDA-Public Use
  Company Number: US-B.I. PHARMACEUTICALS,INC./RIDGEFIELD-2013-BI-16481BP

PATIENT
  Age: 76 Year
  Sex: Male
  Weight: 82 kg

DRUGS (15)
  1. SPIRIVA [Suspect]
     Indication: CHRONIC OBSTRUCTIVE PULMONARY DISEASE
     Dosage: 18 MCG
     Route: 055
     Dates: start: 2012, end: 2013
  2. SPIRIVA [Suspect]
     Dosage: 18 MCG
     Route: 055
     Dates: start: 2013
  3. VENTOLIN [Concomitant]
     Indication: INHALATION THERAPY
  4. LASIX [Concomitant]
  5. SOLOSTAR [Concomitant]
     Indication: TYPE 2 DIABETES MELLITUS
  6. ALTACE [Concomitant]
     Indication: BLOOD PRESSURE MANAGEMENT
  7. GLUCOPHAGE [Concomitant]
  8. ZOCOR [Concomitant]
     Indication: BLOOD CHOLESTEROL ABNORMAL
  9. TEGRETOL [Concomitant]
     Indication: TEMPOROMANDIBULAR JOINT SYNDROME
  10. ADVAIR [Concomitant]
     Indication: CHRONIC OBSTRUCTIVE PULMONARY DISEASE
     Dates: start: 201305
  11. TOPROL [Concomitant]
  12. GLUCOTROL [Concomitant]
  13. LANOXIN [Concomitant]
  14. CARDIZEM [Concomitant]
  15. ZANTAC [Concomitant]
     Indication: DYSPEPSIA

REACTIONS (3)
  - Dyspnoea [Not Recovered/Not Resolved]
  - Product quality issue [Recovered/Resolved]
  - Product quality issue [Recovered/Resolved]
